FAERS Safety Report 8160808 (Version 3)
Quarter: 2014Q3

REPORT INFORMATION
  Report Type: Report from Study
  Country: FR (occurrence: FR)
  Receive Date: 20110928
  Receipt Date: 20140919
  Transmission Date: 20150326
  Serious: Yes (Life-Threatening)
  Sender: FDA-Public Use
  Company Number: FR-PFIZER INC-2011226621

PATIENT
  Age: 31 Year
  Sex: Male

DRUGS (3)
  1. CERUBIDINE [Suspect]
     Active Substance: DAUNORUBICIN HYDROCHLORIDE
     Indication: ACUTE LEUKAEMIA
     Dosage: 120 MG, 1X/DAY
     Route: 042
     Dates: start: 20081117, end: 20081119
  2. MYLOTARG [Suspect]
     Active Substance: GEMTUZUMAB OZOGAMICIN
     Indication: ACUTE LEUKAEMIA
     Dosage: 12 MG, 1X/DAY
     Route: 042
     Dates: start: 20081120, end: 20081120
  3. ARACYTINE [Suspect]
     Active Substance: CYTARABINE
     Indication: LEUKAEMIA
     Dosage: 400 G, 1X/DAY
     Route: 037
     Dates: start: 20081117, end: 20081123

REACTIONS (1)
  - Escherichia sepsis [Recovered/Resolved]

NARRATIVE: CASE EVENT DATE: 20081126
